FAERS Safety Report 6426577-2 (Version None)
Quarter: 2009Q4

REPORT INFORMATION
  Report Type: 
  Country: None (occurrence: None)
  Receive Date: 20091030
  Receipt Date: 20090511
  Transmission Date: 20100525
  Serious: Yes (Other)
  Sender: FDA-Public Use
  Company Number: CL-52-2009

PATIENT
  Age: 51 Year
  Sex: Female

DRUGS (2)
  1. METRONIDAZOLE [Suspect]
     Indication: STOMATITIS
     Dosage: ONE DOSE
  2. SPIRAMYCIN [Suspect]
     Indication: STOMATITIS
     Dosage: ONE DOSE

REACTIONS (6)
  - ANGIOEDEMA [None]
  - PARAESTHESIA ORAL [None]
  - RASH ERYTHEMATOUS [None]
  - RASH PRURITIC [None]
  - RHINORRHOEA [None]
  - SNEEZING [None]
